FAERS Safety Report 7815010-1 (Version None)
Quarter: 2011Q4

REPORT INFORMATION
  Report Type: 
  Country: None (occurrence: None)
  Receive Date: 20111014
  Receipt Date: 20111005
  Transmission Date: 20120403
  Serious: Yes (Hospitalization)
  Sender: FDA-Public Use
  Company Number: JP-GLAXOSMITHKLINE-B0753586A

PATIENT
  Sex: Female

DRUGS (1)
  1. PAXIL [Suspect]
     Indication: PRODUCT USED FOR UNKNOWN INDICATION
     Dosage: 15MG PER DAY
     Route: 064

REACTIONS (8)
  - HYPERVENTILATION [None]
  - TREMOR NEONATAL [None]
  - MATERNAL EXPOSURE DURING PREGNANCY [None]
  - CRYING [None]
  - HYPERREFLEXIA [None]
  - DYSKINESIA NEONATAL [None]
  - IRRITABILITY [None]
  - CONVULSION NEONATAL [None]
